FAERS Safety Report 4754990-8 (Version None)
Quarter: 2005Q3

REPORT INFORMATION
  Report Type: 
  Country: None (occurrence: None)
  Receive Date: 20050829
  Receipt Date: 20050802
  Transmission Date: 20060218
  Serious: Yes (Hospitalization)
  Sender: FDA-Public Use
  Company Number: PHFR2005GB02656

PATIENT
  Sex: Female

DRUGS (3)
  1. GLEEVEC [Suspect]
     Indication: CHRONIC MYELOID LEUKAEMIA
     Dosage: 400 MG/DAY
     Route: 048
     Dates: start: 20030522
  2. GLEEVEC [Suspect]
     Dosage: 600 MG/DAY
  3. HYDROXYUREA [Concomitant]

REACTIONS (2)
  - ERYTHEMA NODOSUM [None]
  - RASH [None]
